FAERS Safety Report 13263249 (Version 1)
Quarter: 2017Q1

REPORT INFORMATION
  Report Type: Spontaneous
  Country: US (occurrence: US)
  Receive Date: 20170223
  Receipt Date: 20170223
  Transmission Date: 20170428
  Serious: No
  Sender: FDA-Public Use
  Company Number: US-BRISTOL-MYERS SQUIBB COMPANY-BMS-2017-015022

PATIENT
  Sex: Female

DRUGS (1)
  1. OPDIVO [Suspect]
     Active Substance: NIVOLUMAB
     Indication: NON-SMALL CELL LUNG CANCER
     Dosage: UNK UNK, Q2WK
     Route: 065
     Dates: start: 20150814, end: 20170209

REACTIONS (5)
  - Sneezing [Unknown]
  - Diarrhoea [Recovering/Resolving]
  - Sinus disorder [Unknown]
  - Arthritis [Recovering/Resolving]
  - Arthralgia [Recovering/Resolving]
